FAERS Safety Report 20174812 (Version 1)
Quarter: 2021Q4

REPORT INFORMATION
  Report Type: Spontaneous
  Country: US (occurrence: None)
  Receive Date: 20211209
  Receipt Date: 20211209
  Transmission Date: 20220303
  Serious: No
  Sender: FDA-Public Use
  Company Number: None

PATIENT
  Age: 41 Year
  Sex: Male
  Weight: 120 kg

DRUGS (3)
  1. CASIRIVIMAB\IMDEVIMAB [Suspect]
     Active Substance: CASIRIVIMAB\IMDEVIMAB
     Indication: COVID-19
     Dosage: FREQUENCY : DAILY;?
     Route: 042
  2. CASIRIVIMAB [Concomitant]
     Active Substance: CASIRIVIMAB
     Dates: start: 20211206, end: 20211206
  3. IMDEVIMAB [Concomitant]
     Active Substance: IMDEVIMAB
     Dates: start: 20211206, end: 20211206

REACTIONS (3)
  - Chest pain [None]
  - Back pain [None]
  - Infusion related reaction [None]

NARRATIVE: CASE EVENT DATE: 20211206
